FAERS Safety Report 13476705 (Version 1)
Quarter: 2017Q2

REPORT INFORMATION
  Report Type: Spontaneous
  Country: GB (occurrence: None)
  Receive Date: 20170424
  Receipt Date: 20170424
  Transmission Date: 20170830
  Serious: Yes (Hospitalization)
  Sender: FDA-Public Use
  Company Number: GB2017K2600SPO

PATIENT
  Age: 70 Year
  Sex: Female

DRUGS (14)
  1. ONDANSETRON [Concomitant]
     Active Substance: ONDANSETRON
  2. LENALIDOMIDE [Concomitant]
     Active Substance: LENALIDOMIDE
  3. ACICLOVIR [Concomitant]
     Active Substance: ACYCLOVIR
  4. CO-TRIMOXAZOLE (SULFAMETHOXAZOLE, SULPHAMETHOXAZOLE. TRIMETHOPRIM) [Concomitant]
  5. CEFALEXIN [Concomitant]
     Active Substance: CEPHALEXIN
  6. LINAGLIPTIN (LINAGLIPTIN) [Concomitant]
     Active Substance: LINAGLIPTIN
  7. OMEPRAZOLE WORLD (OMEPRAZOLE) UNKNOWN [Suspect]
     Active Substance: OMEPRAZOLE
     Route: 048
     Dates: end: 20170330
  8. BISOPROLOL [Concomitant]
     Active Substance: BISOPROLOL
  9. FLUCONAZOLE. [Concomitant]
     Active Substance: FLUCONAZOLE
  10. STEROIDS [Concomitant]
     Active Substance: UNSPECIFIED INGREDIENT
  11. LANSOPRAZOLE GENERIC (LANSOPRAZOLE) UNKNOWN [Suspect]
     Active Substance: LANSOPRAZOLE
     Indication: PROPHYLAXIS
     Route: 048
     Dates: end: 20170330
  12. AMLODIPINE [Concomitant]
     Active Substance: AMLODIPINE BESYLATE
  13. LEVOTHYROXINE. [Concomitant]
     Active Substance: LEVOTHYROXINE
  14. SODIUM BICARBONATE. [Concomitant]
     Active Substance: SODIUM BICARBONATE

REACTIONS (2)
  - Drug prescribing error [None]
  - Hypomagnesaemia [None]
